FAERS Safety Report 10779091 (Version 1)
Quarter: 2015Q1

REPORT INFORMATION
  Report Type: Spontaneous
  Country: US (occurrence: None)
  Receive Date: 20150206
  Receipt Date: 20150206
  Transmission Date: 20150721
  Serious: No
  Sender: FDA-Public Use
  Company Number: None

PATIENT

DRUGS (2)
  1. VAZCULEP [Suspect]
     Active Substance: PHENYLEPHRINE HYDROCHLORIDE
     Dosage: STRENGTH: 50 MG/5 ML, DOSAGE FORM: INJECTABLE, ADM ROUTE; INTRAVENOUS INFUSION, CONTAINER TYPE: VIAL, CANTAINER SIZE: 5 ML
     Route: 042
  2. BLOXIVERZ [Suspect]
     Active Substance: NEOSTIGMINE METHYLSULFATE
     Dosage: STRENGTH: 10 MG/10 ML, DOSAGE FORM: INJECTABLE, ADM ROUTE: INTRAVENOUS USE, CONTAINER TYPE: MULTIPLE DOSE VIAL, CONTAINER SIZE: 10 ML
     Route: 042

REACTIONS (2)
  - Circumstance or information capable of leading to medication error [None]
  - Product packaging confusion [None]
